FAERS Safety Report 9511251 (Version 2)
Quarter: 2014Q1

REPORT INFORMATION
  Report Type: Spontaneous
  Country: US (occurrence: None)
  Receive Date: 20130305
  Receipt Date: 20140306
  Transmission Date: 20141002
  Serious: Yes (Other)
  Sender: FDA-Public Use
  Company Number: 163-21880-12113362

PATIENT
  Age: 70 Year
  Sex: Male

DRUGS (2)
  1. REVLIMID [Suspect]
     Indication: PLASMA CELL MYELOMA
     Dosage: 10 MG, 21 IN 28 D, PO
     Route: 048
     Dates: start: 201002
  2. VELCADE (BORTEZOMIB) (UNKNOWN) [Suspect]
     Indication: PLASMA CELL MYELOMA

REACTIONS (5)
  - Blood glucose increased [None]
  - Neuropathy peripheral [None]
  - Glaucoma [None]
  - Blood cholesterol abnormal [None]
  - Hypertension [None]
